FAERS Safety Report 8026974-8 (Version None)
Quarter: 2012Q1

REPORT INFORMATION
  Report Type: 
  Country: None (occurrence: None)
  Receive Date: 20120106
  Receipt Date: 20120103
  Transmission Date: 20120608
  Serious: No
  Sender: FDA-Public Use
  Company Number: FR-PFIZER INC-2011213319

PATIENT
  Age: 75 Year
  Sex: Male
  Weight: 77 kg

DRUGS (5)
  1. LYRICA [Suspect]
     Indication: PAIN
  2. TRAMADOL HCL [Concomitant]
     Indication: PAIN
     Dosage: 50 MG
     Route: 048
  3. CLONAZEPAM [Concomitant]
     Indication: PAIN
     Dosage: DROPS IN EVENING
     Route: 048
  4. LYRICA [Suspect]
     Indication: INTERVERTEBRAL DISC PROTRUSION
     Dosage: 75 MG, 1X/DAY
     Route: 048
     Dates: start: 20110101
  5. PARACETAMOL [Concomitant]
     Indication: PAIN
     Dosage: UNK
     Route: 048

REACTIONS (3)
  - HYPERSENSITIVITY [None]
  - ECZEMA [None]
  - SKIN EXFOLIATION [None]
